FAERS Safety Report 14733519 (Version 2)
Quarter: 2018Q2

REPORT INFORMATION
  Report Type: Report from Study
  Country: MX (occurrence: MX)
  Receive Date: 20180409
  Receipt Date: 20180423
  Transmission Date: 20180711
  Serious: Yes (Other)
  Sender: FDA-Public Use
  Company Number: MX-BEH-2018089499

PATIENT

DRUGS (2)
  1. HUMAN IMMUNOGLOBULIN IV (GENERIC) [Suspect]
     Active Substance: HUMAN IMMUNOGLOBULIN G
     Indication: RHEUMATIC DISORDER
  2. HUMAN IMMUNOGLOBULIN IV (GENERIC) [Suspect]
     Active Substance: HUMAN IMMUNOGLOBULIN G
     Indication: AUTOIMMUNE DISORDER
     Route: 042

REACTIONS (1)
  - Haemolytic anaemia [Unknown]
